FAERS Safety Report 6403707-X (Version None)
Quarter: 2009Q4

REPORT INFORMATION
  Report Type: 
  Country: None (occurrence: None)
  Receive Date: 20091015
  Receipt Date: 20091015
  Transmission Date: 20100525
  Serious: Yes (Other)
  Sender: FDA-Public Use
  Company Number: None

PATIENT
  Sex: Female
  Weight: 100.2449 kg

DRUGS (2)
  1. PEGASYS [Suspect]
     Dosage: 180  MCG/ 0.5ML WEEKLY SQ
     Route: 058
     Dates: start: 20090811, end: 20090911
  2. RIBAVIRIN [Suspect]
     Dosage: 200 MG 3 CAP BID PO
     Route: 048
     Dates: start: 20090811, end: 20090911

REACTIONS (4)
  - DISEASE PROGRESSION [None]
  - HEPATIC CIRRHOSIS [None]
  - HEPATITIS C [None]
  - PLATELET COUNT DECREASED [None]
